FAERS Safety Report 17510685 (Version 1)
Quarter: 2020Q1

REPORT INFORMATION
  Report Type: Spontaneous
  Country: DE (occurrence: DE)
  Receive Date: 20200306
  Receipt Date: 20200306
  Transmission Date: 20200409
  Serious: Yes (Other)
  Sender: FDA-Public Use
  Company Number: DE-MYLANLABS-2020M1023025

PATIENT
  Age: 61 Year
  Sex: Female

DRUGS (1)
  1. BUDESONIDE. [Suspect]
     Active Substance: BUDESONIDE
     Indication: PRODUCT USED FOR UNKNOWN INDICATION
     Dosage: UNK
     Route: 055

REACTIONS (7)
  - Aspirin-exacerbated respiratory disease [Unknown]
  - Eosinophilia [Unknown]
  - Polyp [Unknown]
  - Bronchial hyperreactivity [Unknown]
  - Asthma [Recovered/Resolved]
  - Chronic sinusitis [Unknown]
  - Sinobronchitis [Unknown]

NARRATIVE: CASE EVENT DATE: 2007
